FAERS Safety Report 5239169-8 (Version None)
Quarter: 2007Q1

REPORT INFORMATION
  Report Type: 
  Country: None (occurrence: None)
  Receive Date: 20061208
  Receipt Date: 20050311
  Transmission Date: 20070707
  Serious: Yes (Other)
  Sender: FDA-Public Use
  Company Number: 2005UW03932

PATIENT
  Age: 78 Year
  Sex: Female
  Weight: 55.33 kg

DRUGS (9)
  1. TOPROL-XL [Suspect]
     Dosage: 50 MG DAILY PO
     Route: 048
     Dates: start: 20040101, end: 20050101
  2. CRESTOR [Suspect]
     Indication: HYPERLIPIDAEMIA
     Dosage: 20 MG DAILY PO
     Route: 048
     Dates: start: 20040606, end: 20041101
  3. BENICAR [Suspect]
     Dosage: 40 MG/12.5 MG
     Dates: start: 20040101, end: 20041201
  4. PLAVIX [Suspect]
     Indication: PULMONARY EMBOLISM
     Dosage: 75 MG PO
     Route: 048
     Dates: start: 20010101, end: 20040301
  5. PLAVIX [Suspect]
     Indication: PULMONARY EMBOLISM
     Dates: start: 20040101
  6. RISEDRONATE SODIUM [Concomitant]
  7. FEXOFENADINE HYDROCHLORIDE [Concomitant]
  8. MONTELUKAST SODIUM [Concomitant]
  9. ZOLPIDEM TARTRATE [Concomitant]

REACTIONS (4)
  - MUSCLE SPASMS [None]
  - MUSCULAR WEAKNESS [None]
  - PAIN [None]
  - WEIGHT DECREASED [None]
